FAERS Safety Report 5620811-4 (Version None)
Quarter: 2008Q1

REPORT INFORMATION
  Report Type: 
  Country: None (occurrence: None)
  Receive Date: 20080208
  Receipt Date: 20080129
  Transmission Date: 20080703
  Serious: Yes (Other)
  Sender: FDA-Public Use
  Company Number: FR-PFIZER INC-2007099975

PATIENT
  Sex: Male
  Weight: 87 kg

DRUGS (6)
  1. NEURONTIN [Suspect]
     Indication: NEURALGIA
     Route: 048
     Dates: start: 20070901, end: 20071221
  2. CORDARONE [Concomitant]
     Route: 048
  3. COZAAR [Concomitant]
     Route: 048
  4. LIPANTHYL [Concomitant]
     Route: 048
  5. SINTROM [Concomitant]
     Route: 048
  6. PROPRANOLOL [Concomitant]
     Route: 048

REACTIONS (1)
  - SLEEP APNOEA SYNDROME [None]
